FAERS Safety Report 9740065 (Version 3)
Quarter: 2013Q4

REPORT INFORMATION
  Report Type: Report from Study
  Country: AU (occurrence: AU)
  Receive Date: 20131209
  Receipt Date: 20131213
  Transmission Date: 20140711
  Serious: Yes (Hospitalization, Other)
  Sender: FDA-Public Use
  Company Number: AU-VERTEX PHARMACEUTICALS INC-2013-010416

PATIENT
  Age: 10 Year
  Sex: Male
  Weight: 32 kg

DRUGS (20)
  1. VX-770 [Suspect]
     Indication: CYSTIC FIBROSIS
     Dosage: 150 MG, BID
     Route: 048
     Dates: start: 20110407, end: 20131006
  2. VX-770 [Suspect]
     Dosage: 150 MG, BID
     Route: 048
     Dates: start: 20131017
  3. CREON [Concomitant]
     Indication: PANCREATIC INSUFFICIENCY
     Dosage: 7 DF, TID
     Dates: start: 20050817
  4. AZITHROMYCIN [Concomitant]
     Indication: ANTIBIOTIC PROPHYLAXIS
     Dosage: 248 MG, UNK
     Dates: start: 20090809
  5. AZITHROMYCIN [Concomitant]
     Dosage: 500 MG, MWF
     Dates: start: 20131014
  6. ADEK [Concomitant]
     Indication: NUTRITIONAL SUPPLEMENTATION
     Dosage: 1 DF, QD
     Dates: start: 20040128
  7. VITAMIN B C COMPLEX [Concomitant]
     Indication: NUTRITIONAL SUPPLEMENTATION
     Dosage: 1 DF, QD
     Dates: start: 20040128
  8. SALT [Concomitant]
     Indication: HYPONATRAEMIA
     Dosage: 600 MG, PRN
     Dates: start: 20080221
  9. PULMOZYME [Concomitant]
     Indication: CYSTIC FIBROSIS LUNG
     Dosage: 2.5 MG, QD
     Dates: start: 20080221
  10. ALVESCO [Concomitant]
     Indication: CYSTIC FIBROSIS LUNG
     Dosage: 80 ?G, PRN
     Route: 055
     Dates: start: 20120912
  11. ALVESCO [Concomitant]
     Dosage: 80 ?G, QD
     Route: 055
     Dates: start: 20131015
  12. OMEPRAZOLE [Concomitant]
     Dosage: 40 MG, BID
     Dates: start: 20131015
  13. OMEPRAZOLE [Concomitant]
     Dosage: 20 MG, BID
  14. LIPASE [Concomitant]
     Dosage: 10000 IU, UNK
  15. MULTIVITAMIN [Concomitant]
     Dosage: UNK, QD
  16. VENTOLIN [Concomitant]
     Dosage: UNK, PRN
     Route: 055
  17. VENTOLIN [Concomitant]
     Dosage: 6 DF, QD
     Route: 055
     Dates: start: 20131015
  18. CIPROFLOXACIN [Concomitant]
     Dosage: 250 MG, BID
     Route: 048
  19. PARACETAMOL [Concomitant]
     Indication: PAIN
     Dosage: 500 MG, UNK
     Dates: start: 20131014
  20. PARACETAMOL [Concomitant]
     Dosage: 450 MG, QID
     Route: 048
     Dates: start: 20131015

REACTIONS (1)
  - Pancreatitis [Recovered/Resolved]
